FAERS Safety Report 12690203 (Version 1)
Quarter: 2016Q3

REPORT INFORMATION
  Report Type: Spontaneous
  Country: US (occurrence: US)
  Receive Date: 20160826
  Receipt Date: 20160826
  Transmission Date: 20161109
  Serious: Yes (Hospitalization)
  Sender: FDA-Public Use
  Company Number: US-ACTELION-A-US2016-141348

PATIENT
  Age: 67 Year
  Sex: Male

DRUGS (9)
  1. REMODULIN [Concomitant]
     Active Substance: TREPROSTINIL
  2. DIGOXIN. [Concomitant]
     Active Substance: DIGOXIN
  3. CLOBETASOL [Concomitant]
     Active Substance: CLOBETASOL
  4. LIDOCAINE. [Concomitant]
     Active Substance: LIDOCAINE
  5. TRACLEER [Suspect]
     Active Substance: BOSENTAN
     Indication: PULMONARY ARTERIAL HYPERTENSION
     Dosage: 125 MG, BID
     Route: 048
     Dates: start: 20120725
  6. TRAMADOL. [Concomitant]
     Active Substance: TRAMADOL
  7. WARFARIN [Concomitant]
     Active Substance: WARFARIN
  8. SPIRONOLACTONE. [Concomitant]
     Active Substance: SPIRONOLACTONE
  9. FUROSEMIDE. [Concomitant]
     Active Substance: FUROSEMIDE

REACTIONS (2)
  - Fall [Unknown]
  - Fracture [Unknown]

NARRATIVE: CASE EVENT DATE: 20160822
